FAERS Safety Report 26173162 (Version 1)
Quarter: 2025Q4

REPORT INFORMATION
  Report Type: Spontaneous
  Country: US (occurrence: US)
  Receive Date: 20251218
  Receipt Date: 20251218
  Transmission Date: 20260118
  Serious: No
  Sender: AMNEAL
  Company Number: US-AMNEAL PHARMACEUTICALS-2025-AMRX-03729

PATIENT
  Sex: Female
  Weight: 50.794 kg

DRUGS (5)
  1. BACLOFEN [Suspect]
     Active Substance: BACLOFEN
     Indication: Product used for unknown indication
     Dosage: 1 TABLETS, 1 /DAY EVERY NIGHT
     Route: 065
  2. CREXONT [Concomitant]
     Active Substance: CARBIDOPA\LEVODOPA
     Indication: Parkinson^s disease
     Dosage: (35/140 MG) 1 CAPSULES, 3 /DAY
     Route: 048
  3. CREXONT [Concomitant]
     Active Substance: CARBIDOPA\LEVODOPA
     Dosage: (35/140 MG) 2 CAPSULES, 3 /DAY
     Route: 048
  4. TYLENOL [Concomitant]
     Active Substance: ACETAMINOPHEN
     Indication: Product used for unknown indication
     Dosage: UNK
     Route: 065
  5. POTASSIUM [Concomitant]
     Active Substance: POTASSIUM
     Indication: Product used for unknown indication
     Dosage: UNK, SUPPLEMENT
     Route: 065

REACTIONS (2)
  - Impaired driving ability [Unknown]
  - Tremor [Unknown]
